FAERS Safety Report 9920204 (Version 1)
Quarter: 2014Q1

REPORT INFORMATION
  Report Type: Report from Study
  Country: None (occurrence: US)
  Receive Date: 20140224
  Receipt Date: 20140224
  Transmission Date: 20141002
  Serious: Yes (Other)
  Sender: FDA-Public Use
  Company Number: US-TEVA-464087USA

PATIENT
  Age: 15 Year
  Sex: Male

DRUGS (5)
  1. CLARAVIS [Suspect]
     Route: 048
  2. EPIPEN [Concomitant]
  3. CLARITIN [Concomitant]
  4. NASONEX [Concomitant]
  5. OMEPRAZOLE [Concomitant]

REACTIONS (3)
  - Suicide attempt [Not Recovered/Not Resolved]
  - Mood altered [Recovering/Resolving]
  - Depressive symptom [Recovering/Resolving]
